FAERS Safety Report 26194595 (Version 1)
Quarter: 2025Q4

REPORT INFORMATION
  Report Type: Spontaneous
  Country: EU (occurrence: EU)
  Receive Date: 20251224
  Receipt Date: 20251224
  Transmission Date: 20260117
  Serious: Yes (Hospitalization, Other)
  Sender: AUROBINDO
  Company Number: EU-AFSSAPS-NT2025001250

PATIENT
  Age: 13 Year
  Sex: Male
  Weight: 31 kg

DRUGS (1)
  1. PREDNISONE [Suspect]
     Active Substance: PREDNISONE
     Indication: Aplasia pure red cell
     Dosage: UNK (~27,5 MG 2 FOIS PAR JOUR (2 MG/KG/J), PUIS ? PARTIR DU 07/05/2025, 22,5 MG LE MATIN ET 20 MG LE SOIR (1,5 MG/KG/JOUR), PUIS ? PARTIR DU 22/05/2025 30 MG LE MATIN (1 MG/KG/JOUR))
     Route: 061
     Dates: start: 20250319, end: 20250528

REACTIONS (2)
  - Posterior reversible encephalopathy syndrome [Recovering/Resolving]
  - Reversible cerebral vasoconstriction syndrome [Recovering/Resolving]

NARRATIVE: CASE EVENT DATE: 20250528
